FAERS Safety Report 5406003-2 (Version None)
Quarter: 2007Q3

REPORT INFORMATION
  Report Type: 
  Country: None (occurrence: None)
  Receive Date: 20070802
  Receipt Date: 20070802
  Transmission Date: 20080115
  Serious: No
  Sender: FDA-Public Use
  Company Number: None

PATIENT
  Age: 56 Year
  Sex: Female
  Weight: 55.7924 kg

DRUGS (1)
  1. POLYETHYLENE GLYCOL [Suspect]
     Indication: CONSTIPATION
     Dosage: ONE TBS DAILY PO
     Route: 048
     Dates: start: 20070513, end: 20070801

REACTIONS (1)
  - PHARMACEUTICAL PRODUCT COMPLAINT [None]
